FAERS Safety Report 17096192 (Version 4)
Quarter: 2020Q1

REPORT INFORMATION
  Report Type: Spontaneous
  Country: JP (occurrence: JP)
  Receive Date: 20191202
  Receipt Date: 20200320
  Transmission Date: 20200409
  Serious: Yes (Hospitalization, Other)
  Sender: FDA-Public Use
  Company Number: JP-SAKK-2019SA330074AA

PATIENT
  Age: 64 Year
  Sex: Female

DRUGS (6)
  1. SIMPONI [Suspect]
     Active Substance: GOLIMUMAB
     Dosage: UNK
     Route: 065
     Dates: start: 201909
  2. AZULFIDINE EN-TABS [Concomitant]
     Active Substance: SULFASALAZINE
     Indication: RHEUMATIC DISORDER
     Dosage: 500 MG, BID
     Route: 048
     Dates: start: 201711, end: 201911
  3. KEVZARA [Suspect]
     Active Substance: SARILUMAB
     Indication: RHEUMATIC DISORDER
     Dosage: DAILY DOSE: 200 MG
     Route: 058
     Dates: start: 201902, end: 201904
  4. KEVZARA [Suspect]
     Active Substance: SARILUMAB
     Dosage: DAILY DOSE: 200 MG
     Route: 058
     Dates: start: 201907, end: 201909
  5. SIMPONI [Suspect]
     Active Substance: GOLIMUMAB
     Indication: PRODUCT USED FOR UNKNOWN INDICATION
     Dosage: UNK
     Route: 065
  6. SIMPONI [Suspect]
     Active Substance: GOLIMUMAB
     Dosage: UNK
     Route: 065
     Dates: start: 201905

REACTIONS (13)
  - Myalgia [Recovered/Resolved]
  - Drug hypersensitivity [Unknown]
  - Arthralgia [Recovered/Resolved]
  - Stomatitis [Recovered/Resolved]
  - Eosinophilia [Recovered/Resolved]
  - Papule [Recovered/Resolved]
  - White blood cell count decreased [Recovered/Resolved]
  - Myositis [Recovered/Resolved]
  - Pruritus [Recovered/Resolved]
  - Complement factor decreased [Recovered/Resolved]
  - Eczema [Recovered/Resolved]
  - Therapeutic product effect incomplete [Unknown]
  - Blood creatine phosphokinase increased [Recovered/Resolved]

NARRATIVE: CASE EVENT DATE: 2019
